FAERS Safety Report 18992992 (Version 3)
Quarter: 2021Q1

REPORT INFORMATION
  Report Type: Report from Study
  Country: US (occurrence: US)
  Receive Date: 20210310
  Receipt Date: 20210319
  Transmission Date: 20210420
  Serious: Yes (Other)
  Sender: FDA-Public Use
  Company Number: US-ALLERGAN-2108814US

PATIENT
  Sex: Female

DRUGS (1)
  1. CYCLOSPORINE 0.5MG/ML EML (9054X) [Suspect]
     Active Substance: CYCLOSPORINE
     Indication: PRODUCT USED FOR UNKNOWN INDICATION

REACTIONS (10)
  - Surgery [Unknown]
  - Brain injury [Unknown]
  - Glossectomy [Unknown]
  - Sjogren^s syndrome [Unknown]
  - Foreign body in eye [Unknown]
  - Therapy interrupted [Unknown]
  - Dry eye [Unknown]
  - Road traffic accident [Recovered/Resolved]
  - Neck surgery [Unknown]
  - Memory impairment [Unknown]
